FAERS Safety Report 15667437 (Version 1)
Quarter: 2018Q4

REPORT INFORMATION
  Report Type: Spontaneous
  Country: NL (occurrence: NL)
  Receive Date: 20181128
  Receipt Date: 20181128
  Transmission Date: 20190205
  Serious: Yes (Other)
  Sender: FDA-Public Use
  Company Number: NL-PFIZER INC-2018485559

PATIENT
  Age: 63 Year
  Sex: Male

DRUGS (8)
  1. TICAGRELOR. [Concomitant]
     Active Substance: TICAGRELOR
     Dosage: 90 MG, QD
     Dates: start: 20171222
  2. CETOMACROGOL/PARAFFIN, LIQUID/PROPYLENE GLYCOL/WHITE SOFT PARAFFIN [Concomitant]
     Dosage: UNK
  3. PERINDOPRIL [Concomitant]
     Active Substance: PERINDOPRIL
     Dosage: 2 MG, QD
     Dates: start: 20171222
  4. SOLIFENACIN/TAMSULOSIN [Concomitant]
     Dosage: UNK UNK, QD
     Dates: start: 20171020
  5. CARBASALATE CALCIUM [Concomitant]
     Active Substance: CARBASPIRIN
     Dosage: 100 MG, QD
     Dates: start: 20171222
  6. ATORVASTATIN [Concomitant]
     Active Substance: ATORVASTATIN
     Dosage: 20 MG, QD
     Dates: start: 20171222
  7. BISOPROLOL [Concomitant]
     Active Substance: BISOPROLOL
     Dosage: 2 MG, Q12H
     Dates: start: 20171222
  8. PANTOPRAZOLE [Suspect]
     Active Substance: PANTOPRAZOLE
     Indication: GASTROOESOPHAGEAL REFLUX DISEASE
     Dosage: 40 MG, QD
     Route: 065
     Dates: start: 20140819, end: 20181016

REACTIONS (2)
  - Hyponatraemia [Recovering/Resolving]
  - Inappropriate antidiuretic hormone secretion [Recovering/Resolving]

NARRATIVE: CASE EVENT DATE: 20181016
